FAERS Safety Report 13596768 (Version 1)
Quarter: 2017Q2

REPORT INFORMATION
  Report Type: Spontaneous
  Country: US (occurrence: US)
  Receive Date: 20170531
  Receipt Date: 20170531
  Transmission Date: 20170830
  Serious: No
  Sender: FDA-Public Use
  Company Number: US-PFIZER INC-2017236201

PATIENT
  Age: 72 Year
  Sex: Female
  Weight: 79.38 kg

DRUGS (6)
  1. ATENOLOL. [Concomitant]
     Active Substance: ATENOLOL
     Indication: HYPERTENSION
     Dosage: 50 MG, 1X/DAY
  2. ZOLPIDEM [Concomitant]
     Active Substance: ZOLPIDEM\ZOLPIDEM TARTRATE
     Indication: SLEEP DISORDER
     Dosage: 5 MG, UNK
  3. ESTRACE [Concomitant]
     Active Substance: ESTRADIOL
     Indication: CYSTITIS INTERSTITIAL
     Dosage: HALF 0.5 MG, TWO A DAY
  4. LEVOTHYROXINE. [Concomitant]
     Active Substance: LEVOTHYROXINE
     Indication: HYPOTHYROIDISM
     Dosage: 75 UG, UNK
  5. ATORVASTATIN CALCIUM. [Suspect]
     Active Substance: ATORVASTATIN CALCIUM
     Indication: CHEST PAIN
     Dosage: 10 MG, 1X/DAY
     Route: 048
     Dates: start: 201701
  6. PLAVIX [Concomitant]
     Active Substance: CLOPIDOGREL BISULFATE
     Dosage: TO TAKE AT LEAST 6 MONTHS

REACTIONS (9)
  - Pain [Not Recovered/Not Resolved]
  - Pain in extremity [Not Recovered/Not Resolved]
  - Dyspnoea [Unknown]
  - Product use in unapproved indication [Unknown]
  - Mobility decreased [Unknown]
  - Feeling abnormal [Unknown]
  - Back pain [Unknown]
  - Musculoskeletal pain [Unknown]
  - Nasal congestion [Unknown]
